FAERS Safety Report 18637142 (Version 1)
Quarter: 2020Q4

REPORT INFORMATION
  Report Type: Spontaneous
  Country: PL (occurrence: PL)
  Receive Date: 20201219
  Receipt Date: 20201219
  Transmission Date: 20210114
  Serious: Yes (Other)
  Sender: FDA-Public Use
  Company Number: PL-AUROBINDO-AUR-APL-2020-061237

PATIENT
  Age: 45 Year
  Sex: Female
  Weight: 119 kg

DRUGS (5)
  1. TORASEMIDE [Suspect]
     Active Substance: TORSEMIDE
     Indication: PRODUCT USED FOR UNKNOWN INDICATION
     Dosage: 10 MILLIGRAM (IN THE EVENING)
     Route: 065
  2. BISOPROLOL [Suspect]
     Active Substance: BISOPROLOL
     Dosage: 10 MILLIGRAM
     Route: 065
  3. BISOPROLOL [Suspect]
     Active Substance: BISOPROLOL
     Indication: PRODUCT USED FOR UNKNOWN INDICATION
     Dosage: 5 MILLIGRAM
     Route: 065
  4. SACUBITRIL;VALSARTAN [Suspect]
     Active Substance: SACUBITRIL\VALSARTAN
     Indication: CARDIAC FAILURE
     Dosage: 2 DOSAGE FORM, TWO TIMES A DAY (49/51 MG IN THE MORNING + 24/26 MG IN THE EVENING)
     Route: 065
  5. SACUBITRIL;VALSARTAN [Suspect]
     Active Substance: SACUBITRIL\VALSARTAN
     Dosage: 1 DOSAGE FORM, TWO TIMES A DAY (49/51 MG IN THE MORNING + 24/26 MG IN THE EVENING)
     Route: 065

REACTIONS (22)
  - Rash papular [Unknown]
  - Waist circumference increased [Unknown]
  - Dyspnoea exertional [Unknown]
  - Tachycardia [Unknown]
  - Mitral valve incompetence [Unknown]
  - Tricuspid valve incompetence [Unknown]
  - Diastolic dysfunction [Unknown]
  - Nodular rash [Unknown]
  - Rash [Unknown]
  - Oedema peripheral [Unknown]
  - Hypotonia [Unknown]
  - Dyspnoea [Unknown]
  - Hypokinesia [Unknown]
  - Ulcer [Unknown]
  - Immunoglobulins increased [Unknown]
  - Hepatic steatosis [Unknown]
  - Protein total decreased [Unknown]
  - Blood albumin decreased [Unknown]
  - Ascites [Unknown]
  - Hyperkalaemia [Unknown]
  - Gastric disorder [Unknown]
  - Weight increased [Unknown]
